FAERS Safety Report 25201164 (Version 1)
Quarter: 2025Q2

REPORT INFORMATION
  Report Type: Spontaneous
  Country: CA (occurrence: CA)
  Receive Date: 20250416
  Receipt Date: 20250416
  Transmission Date: 20250716
  Serious: Yes (Other)
  Sender: INTERCEPT PHARMACEUTICALS
  Company Number: CA-ADVANZ PHARMA-202409007372

PATIENT
  Age: 75 Year
  Sex: Female

DRUGS (5)
  1. OCALIVA [Suspect]
     Active Substance: OBETICHOLIC ACID
     Indication: Primary biliary cholangitis
     Route: 048
     Dates: start: 20200117, end: 20250331
  2. URSODIOL [Concomitant]
     Active Substance: URSODIOL
     Dates: start: 200601
  3. CYCLOSPORINE [Concomitant]
     Active Substance: CYCLOSPORINE
  4. CYCLOSPORINE [Concomitant]
     Active Substance: CYCLOSPORINE
  5. ALUMINUM HYDROXIDE [Concomitant]
     Active Substance: ALUMINUM HYDROXIDE

REACTIONS (11)
  - Atrial fibrillation [Unknown]
  - Portal hypertension [Unknown]
  - Enzyme level increased [Unknown]
  - Blood pressure decreased [Unknown]
  - Liver disorder [Unknown]
  - Disease progression [Unknown]
  - Varices oesophageal [Unknown]
  - Off label use [Unknown]
  - Product use issue [Unknown]
  - Product dose omission issue [Unknown]
  - Therapy cessation [Unknown]

NARRATIVE: CASE EVENT DATE: 20200117
